FAERS Safety Report 23648834 (Version 1)
Quarter: 2024Q1

REPORT INFORMATION
  Report Type: Spontaneous
  Country: FI (occurrence: FI)
  Receive Date: 20240319
  Receipt Date: 20240319
  Transmission Date: 20240410
  Serious: Yes (Hospitalization)
  Sender: FDA-Public Use
  Company Number: None

PATIENT
  Age: 58 Year
  Sex: Female

DRUGS (6)
  1. PACLITAXEL [Suspect]
     Active Substance: PACLITAXEL
     Indication: Breast cancer
     Dosage: 160 MG?FORM OF ADMIN-CONCENTRATE FOR SOLUTION FOR INFUSION
     Route: 042
     Dates: start: 20231013, end: 20231030
  2. Dexamethasone Abcur [Concomitant]
     Indication: Premedication
     Dosage: 10 MG?FOA-TABLET (UNCOATED, ORAL)
     Route: 048
     Dates: start: 20231030
  3. Cardace [Concomitant]
     Indication: Hypertension
     Dosage: 5 MG X 1?FOA-TABLET (UNCOATED, ORAL)
     Route: 048
     Dates: start: 20220926
  4. CETIRIZINE HYDROCHLORIDE [Concomitant]
     Active Substance: CETIRIZINE HYDROCHLORIDE
     Indication: Premedication
     Dosage: 10 MG
     Route: 048
     Dates: start: 20231030, end: 20231030
  5. PEPCID [Concomitant]
     Active Substance: FAMOTIDINE
     Indication: Premedication
     Dosage: 10 MG?FOA-FILM-COATED TABLET
     Route: 048
     Dates: start: 20231030, end: 20231030
  6. CARBOPLATIN [Concomitant]
     Active Substance: CARBOPLATIN
     Indication: Breast cancer
     Dosage: 276 MG?FOA-CONCENTRATE FOR SOLUTION FOR INFUSION
     Route: 042
     Dates: start: 20231013

REACTIONS (6)
  - Tremor [Recovered/Resolved]
  - Nausea [Recovered/Resolved]
  - Infusion related reaction [Recovered/Resolved]
  - Blood pressure increased [Recovered/Resolved]
  - Erythema [Recovered/Resolved]
  - Chest discomfort [Recovered/Resolved]

NARRATIVE: CASE EVENT DATE: 20231030
